FAERS Safety Report 15891776 (Version 1)
Quarter: 2019Q1

REPORT INFORMATION
  Report Type: Spontaneous
  Country: FR (occurrence: FR)
  Receive Date: 20190130
  Receipt Date: 20190130
  Transmission Date: 20190417
  Serious: Yes (Hospitalization, Other)
  Sender: FDA-Public Use
  Company Number: FR-PFIZER INC-2019034957

PATIENT
  Age: 68 Year
  Sex: Female
  Weight: 56 kg

DRUGS (10)
  1. FLUOROURACILE ACCORD [Suspect]
     Active Substance: FLUOROURACIL
     Indication: ADENOCARCINOMA OF COLON
     Dosage: (C1-C2: 5300MG/CYCLE AND C3: 3900MG/CYCLE), CYCLIC
     Route: 042
     Dates: start: 20180924
  2. FILGRASTIM [Concomitant]
     Active Substance: FILGRASTIM
     Dosage: UNK
  3. APREPITANT. [Concomitant]
     Active Substance: APREPITANT
     Dosage: UNK
  4. OXALIPLATIN. [Suspect]
     Active Substance: OXALIPLATIN
     Indication: ADENOCARCINOMA OF COLON
     Dosage: (C1-C2: 140MG/CYCLE AND C3:120MG/CYCLE) CYCLIC
     Route: 042
     Dates: start: 20180924
  5. PIPERACILLIN/ TAZOBACTAM KABI [Suspect]
     Active Substance: PIPERACILLIN SODIUM\TAZOBACTAM SODIUM
     Indication: SEPSIS
     Dosage: 4 G, 3X/DAY
     Route: 042
     Dates: start: 20181031, end: 20181102
  6. CALCIUM FOLINATE [Suspect]
     Active Substance: LEUCOVORIN CALCIUM
     Indication: ADENOCARCINOMA OF COLON
     Dosage: (C1-C2:680 MG/CYCLE AND C3: 640 MG/CYCLE), CYCLIC
     Route: 042
     Dates: start: 20180924
  7. PIPERACILLIN/ TAZOBACTAM KABI [Suspect]
     Active Substance: PIPERACILLIN SODIUM\TAZOBACTAM SODIUM
     Dosage: 4 G, 4X/DAY
     Route: 042
     Dates: start: 20181031, end: 20181106
  8. AMIKACIN. [Suspect]
     Active Substance: AMIKACIN
     Indication: SEPSIS
     Dosage: UNK
     Route: 042
     Dates: start: 20181102
  9. METHYLPREDNISOLONE. [Concomitant]
     Active Substance: METHYLPREDNISOLONE
     Dosage: UNK
  10. ONDANSETRON [Concomitant]
     Active Substance: ONDANSETRON
     Dosage: UNK

REACTIONS (1)
  - Encephalopathy [Recovering/Resolving]

NARRATIVE: CASE EVENT DATE: 20181104
